FAERS Safety Report 5141596-4 (Version None)
Quarter: 2006Q4

REPORT INFORMATION
  Report Type: 
  Country: None (occurrence: None)
  Receive Date: 20061026
  Receipt Date: 20061018
  Transmission Date: 20070319
  Serious: Yes (Other)
  Sender: FDA-Public Use
  Company Number: 2006105110

PATIENT
  Age: 43 Year
  Sex: Female

DRUGS (2)
  1. LIPITOR [Suspect]
     Indication: HYPERLIPIDAEMIA
     Dosage: 40 MG (40 MG, 1 IN 1 D), ORAL
     Route: 048
  2. NEXIUM [Concomitant]

REACTIONS (6)
  - BLOOD CHOLESTEROL INCREASED [None]
  - FACE OEDEMA [None]
  - HEADACHE [None]
  - HYPERSENSITIVITY [None]
  - LOW DENSITY LIPOPROTEIN INCREASED [None]
  - OEDEMA PERIPHERAL [None]
